FAERS Safety Report 13008026 (Version 6)
Quarter: 2017Q4

REPORT INFORMATION
  Report Type: Spontaneous
  Country: JP (occurrence: JP)
  Receive Date: 20161208
  Receipt Date: 20171122
  Transmission Date: 20180320
  Serious: Yes (Death, Hospitalization, Other)
  Sender: FDA-Public Use
  Company Number: JP-BAXTER-2016BAX061307

PATIENT
  Age: 44 Year
  Sex: Female

DRUGS (13)
  1. ALOXI [Suspect]
     Active Substance: PALONOSETRON HYDROCHLORIDE
     Indication: SUPPORTIVE CARE
     Route: 065
     Dates: start: 20161119
  2. LACTATED RINGERS SOLUTION [Suspect]
     Active Substance: CALCIUM CHLORIDE\POTASSIUM CHLORIDE\SODIUM CHLORIDE\SODIUM LACTATE
     Indication: NAUSEA
     Route: 065
     Dates: start: 20161123
  3. ADRIACIN [Suspect]
     Active Substance: DOXORUBICIN HYDROCHLORIDE
     Indication: BREAST CANCER
     Route: 041
     Dates: start: 20161114
  4. NOREPINEPHRINE. [Suspect]
     Active Substance: NOREPINEPHRINE
     Indication: PRODUCT USED FOR UNKNOWN INDICATION
     Route: 065
     Dates: start: 20161127
  5. ENDOXAN 1G [Suspect]
     Active Substance: CYCLOPHOSPHAMIDE
     Indication: BREAST CANCER
     Route: 041
     Dates: start: 20161119, end: 20161119
  6. ADRIACIN [Suspect]
     Active Substance: DOXORUBICIN HYDROCHLORIDE
     Dosage: ADJUVANT THERAPY, INITIAL DOSE
     Route: 041
     Dates: start: 20161119, end: 20161119
  7. ALOXI [Suspect]
     Active Substance: PALONOSETRON HYDROCHLORIDE
     Indication: PROPHYLAXIS
     Route: 065
     Dates: start: 20161114
  8. DECADRON [Suspect]
     Active Substance: DEXAMETHASONE
     Indication: PROPHYLAXIS
     Route: 065
     Dates: start: 20161114
  9. DOMPERIDONE [Suspect]
     Active Substance: DOMPERIDONE
     Indication: NAUSEA
     Route: 065
     Dates: start: 20161123
  10. ACETAMINOPHEN. [Suspect]
     Active Substance: ACETAMINOPHEN
     Indication: NAUSEA
     Route: 065
     Dates: start: 20161123
  11. GLYCERIN\FRUCTOSE [Suspect]
     Active Substance: FRUCTOSE\GLYCERIN
     Indication: BRAIN OEDEMA
     Route: 065
     Dates: start: 20161126
  12. DECADRON [Suspect]
     Active Substance: DEXAMETHASONE
     Indication: SUPPORTIVE CARE
     Route: 065
     Dates: start: 20161119
  13. GLYCERIN\FRUCTOSE [Suspect]
     Active Substance: FRUCTOSE\GLYCERIN
     Indication: HYPERAMMONAEMIA
     Route: 065
     Dates: start: 20161127

REACTIONS (9)
  - Brain oedema [Fatal]
  - Brain death [Not Recovered/Not Resolved]
  - Blood pressure decreased [Unknown]
  - Hyperammonaemia [Fatal]
  - Altered state of consciousness [Fatal]
  - Therapy non-responder [Unknown]
  - Feeding disorder [Unknown]
  - Nausea [Unknown]
  - Respiratory disorder [Unknown]

NARRATIVE: CASE EVENT DATE: 201611
